FAERS Safety Report 8595707-9 (Version None)
Quarter: 2012Q3

REPORT INFORMATION
  Report Type: 
  Country: None (occurrence: None)
  Receive Date: 20120815
  Receipt Date: 20120814
  Transmission Date: 20120928
  Serious: Yes (Death)
  Sender: FDA-Public Use
  Company Number: US-ROCHE-1088638

PATIENT
  Sex: Male

DRUGS (4)
  1. TRAMADOL HCL [Concomitant]
     Indication: PAIN
     Dates: start: 20120501
  2. XELODA [Suspect]
     Indication: COLON CANCER
     Route: 048
     Dates: start: 20120510, end: 20120601
  3. LACTULOSE [Concomitant]
     Indication: JAUNDICE
     Route: 048
     Dates: start: 20120501
  4. LORTAB [Concomitant]
     Indication: PAIN
     Dates: start: 20120423

REACTIONS (3)
  - RESPIRATORY FAILURE [None]
  - GASTROINTESTINAL HAEMORRHAGE [None]
  - MALIGNANT ASCITES [None]
